FAERS Safety Report 20776683 (Version 2)
Quarter: 2022Q3

REPORT INFORMATION
  Report Type: Spontaneous
  Country: BR (occurrence: BR)
  Receive Date: 20220502
  Receipt Date: 20220826
  Transmission Date: 20221027
  Serious: Yes (Other)
  Sender: FDA-Public Use
  Company Number: BR-ABBOTT-2022A-1348200

PATIENT
  Sex: Female
  Weight: 71 kg

DRUGS (1)
  1. DEPAKENE [Suspect]
     Active Substance: VALPROIC ACID
     Indication: Seizure
     Dosage: ONE OR TWO TABLETS PER DAY
     Route: 048

REACTIONS (3)
  - Renal neoplasm [Unknown]
  - Poor quality product administered [Unknown]
  - Product quality issue [Unknown]
